FAERS Safety Report 9229675 (Version 7)
Quarter: 2014Q3

REPORT INFORMATION
  Report Type: Report from Study
  Country: US (occurrence: US)
  Receive Date: 20130415
  Receipt Date: 20140711
  Transmission Date: 20150326
  Serious: Yes (Hospitalization)
  Sender: FDA-Public Use
  Company Number: US-BIOGENIDEC-2013BI031984

PATIENT
  Age: 49 Year
  Sex: Female

DRUGS (8)
  1. AVONEX [Suspect]
     Active Substance: INTERFERON BETA-1A
     Indication: MULTIPLE SCLEROSIS
     Route: 030
     Dates: start: 19960615
  2. AVONEX [Suspect]
     Active Substance: INTERFERON BETA-1A
     Indication: MULTIPLE SCLEROSIS
     Route: 030
     Dates: start: 20030601, end: 20080315
  3. AVONEX [Suspect]
     Active Substance: INTERFERON BETA-1A
     Indication: MULTIPLE SCLEROSIS
     Route: 030
     Dates: start: 2012
  4. AVONEX [Suspect]
     Active Substance: INTERFERON BETA-1A
     Indication: MULTIPLE SCLEROSIS
     Route: 030
  5. AVONEX [Suspect]
     Active Substance: INTERFERON BETA-1A
     Indication: MULTIPLE SCLEROSIS
     Route: 030
     Dates: start: 20090607, end: 2012
  6. VITAMIN D [Concomitant]
     Active Substance: CHOLECALCIFEROL
  7. AVONEX [Suspect]
     Active Substance: INTERFERON BETA-1A
     Indication: MULTIPLE SCLEROSIS
     Route: 030
     Dates: start: 20080615, end: 20090607
  8. REBIF [Concomitant]
     Active Substance: INTERFERON BETA-1A

REACTIONS (64)
  - Weight increased [Not Recovered/Not Resolved]
  - Induration [Not Recovered/Not Resolved]
  - Skin fissures [Not Recovered/Not Resolved]
  - Joint swelling [Not Recovered/Not Resolved]
  - Decreased immune responsiveness [Unknown]
  - Muscle spasms [Not Recovered/Not Resolved]
  - Concussion [Recovered/Resolved]
  - Ligament sprain [Recovered/Resolved]
  - Scar [Unknown]
  - Hearing impaired [Not Recovered/Not Resolved]
  - Muscle disorder [Not Recovered/Not Resolved]
  - Micturition urgency [Not Recovered/Not Resolved]
  - Pain [Not Recovered/Not Resolved]
  - Insomnia [Not Recovered/Not Resolved]
  - Haemorrhage [Recovered/Resolved]
  - Dizziness [Unknown]
  - Intervertebral disc disorder [Recovered/Resolved]
  - Fall [Recovered/Resolved]
  - Hip fracture [Unknown]
  - Lymphoedema [Not Recovered/Not Resolved]
  - Dysstasia [Not Recovered/Not Resolved]
  - Peripheral swelling [Not Recovered/Not Resolved]
  - Spinal osteoarthritis [Not Recovered/Not Resolved]
  - Contusion [Recovered/Resolved]
  - Musculoskeletal chest pain [Recovered/Resolved]
  - White blood cell count decreased [Not Recovered/Not Resolved]
  - Coordination abnormal [Not Recovered/Not Resolved]
  - Lymphadenopathy [Not Recovered/Not Resolved]
  - Tremor [Recovered/Resolved]
  - Cystitis interstitial [Not Recovered/Not Resolved]
  - Faecal incontinence [Not Recovered/Not Resolved]
  - Skin exfoliation [Not Recovered/Not Resolved]
  - Feeling hot [Not Recovered/Not Resolved]
  - Arthralgia [Recovered/Resolved]
  - Rotator cuff syndrome [Recovered/Resolved]
  - Balance disorder [Recovered/Resolved]
  - Gait disturbance [Not Recovered/Not Resolved]
  - Hyperacusis [Recovered/Resolved]
  - Urinary incontinence [Not Recovered/Not Resolved]
  - Stress [Unknown]
  - Musculoskeletal pain [Not Recovered/Not Resolved]
  - Musculoskeletal stiffness [Not Recovered/Not Resolved]
  - Blister [Not Recovered/Not Resolved]
  - Urinary retention [Not Recovered/Not Resolved]
  - Dyspnoea [Recovered/Resolved]
  - Multiple sclerosis relapse [Recovered/Resolved]
  - Myofascial pain syndrome [Recovered/Resolved]
  - Pain in extremity [Unknown]
  - Neck pain [Not Recovered/Not Resolved]
  - Loss of consciousness [Recovered/Resolved]
  - Dysphagia [Not Recovered/Not Resolved]
  - Formication [Not Recovered/Not Resolved]
  - General symptom [Unknown]
  - Memory impairment [Not Recovered/Not Resolved]
  - Wound [Not Recovered/Not Resolved]
  - Asthenia [Recovered/Resolved]
  - Anaemia [Not Recovered/Not Resolved]
  - Influenza like illness [Recovered/Resolved]
  - Muscular weakness [Not Recovered/Not Resolved]
  - Red blood cell count decreased [Not Recovered/Not Resolved]
  - Kidney infection [Not Recovered/Not Resolved]
  - Scoliosis [Not Recovered/Not Resolved]
  - Decubitus ulcer [Not Recovered/Not Resolved]
  - Erythema [Not Recovered/Not Resolved]

NARRATIVE: CASE EVENT DATE: 200306
